FAERS Safety Report 17888646 (Version 1)
Quarter: 2020Q2

REPORT INFORMATION
  Report Type: Spontaneous
  Country: US (occurrence: US)
  Receive Date: 20200611
  Receipt Date: 20200611
  Transmission Date: 20200714
  Serious: Yes (Other)
  Sender: FDA-Public Use
  Company Number: None

PATIENT
  Age: 79 Year
  Sex: Female
  Weight: 61.88 kg

DRUGS (6)
  1. MULTIVITAMINS [Concomitant]
     Active Substance: VITAMINS
  2. CALCIUM [Concomitant]
     Active Substance: CALCIUM
  3. LETROZOLE. [Concomitant]
     Active Substance: LETROZOLE
  4. GLUCOSAMINE [Concomitant]
     Active Substance: GLUCOSAMINE
  5. ASPIRIN. [Concomitant]
     Active Substance: ASPIRIN
  6. IBRANCE [Suspect]
     Active Substance: PALBOCICLIB
     Indication: BREAST CANCER
     Route: 048
     Dates: start: 20181228

REACTIONS (1)
  - Disease progression [None]
